FAERS Safety Report 8819847 (Version 2)
Quarter: 2014Q3

REPORT INFORMATION
  Report Type: Report from Study
  Country: US (occurrence: US)
  Receive Date: 20121001
  Receipt Date: 20140911
  Transmission Date: 20150326
  Serious: Yes (Other)
  Sender: FDA-Public Use
  Company Number: US-ROCHE-1129756

PATIENT
  Sex: Male
  Weight: 85.35 kg

DRUGS (8)
  1. ADRIAMYCIN [Concomitant]
     Active Substance: DOXORUBICIN HYDROCHLORIDE
     Route: 065
  2. ADRIAMYCIN [Concomitant]
     Active Substance: DOXORUBICIN HYDROCHLORIDE
     Route: 042
  3. HERCEPTIN [Suspect]
     Active Substance: TRASTUZUMAB
     Route: 042
  4. VINCRISTINE [Concomitant]
     Active Substance: VINCRISTINE
  5. EPOGEN [Concomitant]
     Active Substance: ERYTHROPOIETIN
  6. HERCEPTIN [Suspect]
     Active Substance: TRASTUZUMAB
     Indication: PROSTATE CANCER
     Dosage: LOADING DOSE
     Route: 042
  7. ESTRAMUSTINE [Concomitant]
     Active Substance: ESTRAMUSTINE
  8. FLUOROURACIL. [Concomitant]
     Active Substance: FLUOROURACIL

REACTIONS (10)
  - Swelling [Unknown]
  - Off label use [Unknown]
  - Hyposmia [Recovered/Resolved]
  - Muscular weakness [Recovering/Resolving]
  - Bone marrow oedema [Unknown]
  - Speech disorder [Unknown]
  - Ascites [Unknown]
  - Scrotal oedema [Unknown]
  - Tenderness [Unknown]
  - Transient ischaemic attack [Unknown]
